FAERS Safety Report 4366074-1 (Version None)
Quarter: 2004Q2

REPORT INFORMATION
  Report Type: 
  Country: None (occurrence: None)
  Receive Date: 20040526
  Receipt Date: 20040526
  Transmission Date: 20050107
  Serious: No
  Sender: FDA-Public Use
  Company Number: None

PATIENT
  Age: 58 Year

DRUGS (1)
  1. VIAGRA [Suspect]

REACTIONS (9)
  - CHILLS [None]
  - DECREASED APPETITE [None]
  - FLUSHING [None]
  - HEADACHE [None]
  - HYPERHIDROSIS [None]
  - PHOTOPHOBIA [None]
  - RASH [None]
  - SENSATION OF PRESSURE [None]
  - SKIN ULCER [None]
